FAERS Safety Report 5284518-8 (Version None)
Quarter: 2007Q2

REPORT INFORMATION
  Report Type: 
  Country: None (occurrence: None)
  Receive Date: 20070403
  Receipt Date: 20070329
  Transmission Date: 20071010
  Serious: Yes (Hospitalization, Other)
  Sender: FDA-Public Use
  Company Number: 2007-001221

PATIENT
  Age: 23 Year
  Sex: Male
  Weight: 55.8 kg

DRUGS (2)
  1. FLOLAN [Suspect]
     Dosage: 25NGKM UNKNOWN
     Route: 042
     Dates: start: 20000721
  2. INFUSION FLUID [Concomitant]

REACTIONS (4)
  - BLOOD PRESSURE INCREASED [None]
  - CATHETER RELATED COMPLICATION [None]
  - CATHETER SITE HAEMORRHAGE [None]
  - PHARMACEUTICAL PRODUCT COMPLAINT [None]
